FAERS Safety Report 9266160 (Version 2)
Quarter: 2013Q3

REPORT INFORMATION
  Report Type: Report from Study
  Country: CA (occurrence: CA)
  Receive Date: 20130502
  Receipt Date: 20130927
  Transmission Date: 20140515
  Serious: Yes (Death, Hospitalization)
  Sender: FDA-Public Use
  Company Number: CA-ROCHE-1220461

PATIENT
  Age: 79 Year
  Sex: Male
  Weight: 78.5 kg

DRUGS (5)
  1. RITUXAN [Suspect]
     Indication: IMMUNE THROMBOCYTOPENIC PURPURA
     Route: 042
     Dates: start: 20121227
  2. ATORVASTATIN [Concomitant]
  3. ROCALTROL [Concomitant]
  4. BISOPROLOL [Concomitant]
  5. TUMS [Concomitant]

REACTIONS (2)
  - Platelet count decreased [Recovered/Resolved]
  - Death [Fatal]
